FAERS Safety Report 22908504 (Version 2)
Quarter: 2024Q2

REPORT INFORMATION
  Report Type: Spontaneous
  Country: US (occurrence: US)
  Receive Date: 20230905
  Receipt Date: 20240605
  Transmission Date: 20240716
  Serious: No
  Sender: FDA-Public Use
  Company Number: US-PFIZER INC-PV202300149358

PATIENT

DRUGS (2)
  1. VARENICLINE TARTRATE [Suspect]
     Active Substance: VARENICLINE TARTRATE
     Indication: Anxiety
     Dosage: 1 MG, 2X/DAY
  2. VARENICLINE TARTRATE [Suspect]
     Active Substance: VARENICLINE TARTRATE
     Indication: Depression

REACTIONS (4)
  - Emotional disorder [Unknown]
  - Anxiety [Unknown]
  - Off label use [Unknown]
  - Drug effective for unapproved indication [Unknown]
